FAERS Safety Report 7333430-9 (Version None)
Quarter: 2011Q1

REPORT INFORMATION
  Report Type: 
  Country: None (occurrence: None)
  Receive Date: 20110304
  Receipt Date: 20110221
  Transmission Date: 20110831
  Serious: Yes (Other)
  Sender: FDA-Public Use
  Company Number: PHHY2010DE79776

PATIENT
  Sex: Female
  Weight: 76 kg

DRUGS (4)
  1. VOTUM [Concomitant]
     Dosage: 40 MG
     Dates: start: 20020101
  2. BISOPROLOL FUMARATE [Concomitant]
     Dosage: 5 MG
     Dates: start: 20020101
  3. CGS 20267 [Suspect]
     Indication: BREAST CANCER
     Dosage: 2.5 MG, DAILY
     Route: 048
     Dates: start: 20090217, end: 20090701
  4. HYDROCHLOROTHIAZIDE [Concomitant]
     Dosage: 25 MG
     Dates: start: 20020101

REACTIONS (4)
  - PAIN IN EXTREMITY [None]
  - ARTHRALGIA [None]
  - SLEEP DISORDER [None]
  - MYALGIA [None]
